FAERS Safety Report 8756841 (Version 3)
Quarter: 2012Q4

REPORT INFORMATION
  Report Type: Spontaneous
  Country: JP (occurrence: None)
  Receive Date: 20120813
  Receipt Date: 20121011
  Transmission Date: 20130627
  Serious: Yes (Other)
  Sender: FDA-Public Use
  Company Number: JP-2012-15976

PATIENT
  Age: 82 Year
  Sex: Male
  Weight: 64 kg

DRUGS (8)
  1. SAMSCA (TOLVAPTAN) TABLET [Suspect]
     Indication: FLUID RETENTION
     Route: 048
     Dates: start: 20120608, end: 20120620
  2. CONIEL (BENIDIPINE HYDROCHLORIDE) [Concomitant]
  3. MAINTATE (BISOPROLOL FUMARATE) [Concomitant]
  4. BAYASPIRIN (ACETYLSALICYLIC ACID) [Concomitant]
  5. LASIX (FUROSEMIDE) [Concomitant]
  6. ALDACTONE A (SPIRONOLACTONE) [Concomitant]
  7. LIPITOR (ATORVASTATIN CALCIUM) [Concomitant]
  8. WARFARIN (WARFARIN SODIUM) [Concomitant]

REACTIONS (2)
  - Haemoglobin decreased [None]
  - Thirst [None]
